FAERS Safety Report 20189035 (Version 1)
Quarter: 2021Q4

REPORT INFORMATION
  Report Type: Spontaneous
  Country: AR (occurrence: AR)
  Receive Date: 20211215
  Receipt Date: 20211215
  Transmission Date: 20220303
  Serious: No
  Sender: FDA-Public Use
  Company Number: AR-PFIZER INC-202101075352

PATIENT
  Age: 11 Year
  Sex: Male

DRUGS (1)
  1. GENOTROPIN [Suspect]
     Active Substance: SOMATROPIN
     Indication: Foetal growth restriction
     Dosage: 1.5-2MG, 7X/WEEK
     Dates: start: 20210805, end: 20210812

REACTIONS (3)
  - Off label use [Unknown]
  - Drug dose omission by device [Unknown]
  - Device mechanical issue [Unknown]

NARRATIVE: CASE EVENT DATE: 20210805
